FAERS Safety Report 8530018 (Version 2)
Quarter: 2013Q1

REPORT INFORMATION
  Report Type: Spontaneous
  Country: US (occurrence: US)
  Receive Date: 20120425
  Receipt Date: 20130325
  Transmission Date: 20140127
  Serious: Yes (Hospitalization)
  Sender: FDA-Public Use
  Company Number: US-GLAXOSMITHKLINE-A0866428A

PATIENT
  Age: 54 Year
  Sex: Female
  Weight: 76.4 kg

DRUGS (13)
  1. AVANDIA [Suspect]
     Indication: TYPE 2 DIABETES MELLITUS
     Dosage: 4MG TWICE PER DAY
     Route: 048
     Dates: start: 20040423, end: 20050721
  2. NEXIUM [Concomitant]
  3. NORVASC [Concomitant]
  4. LIPITOR [Concomitant]
  5. GLUCOPHAGE [Concomitant]
  6. MICRONASE [Concomitant]
  7. ZESTRIL [Concomitant]
  8. TENORMIN [Concomitant]
  9. TOPROL [Concomitant]
  10. INSULIN NOVOLIN [Concomitant]
  11. INSULIN LANTUS [Concomitant]
  12. PLAVIX [Concomitant]
  13. ASPIRIN [Concomitant]

REACTIONS (9)
  - Myocardial infarction [Recovering/Resolving]
  - Headache [Unknown]
  - Speech disorder [Unknown]
  - Hypoaesthesia [Unknown]
  - Cardiac disorder [Unknown]
  - Cerebrovascular accident [Unknown]
  - Head injury [Unknown]
  - Blindness [Unknown]
  - Balance disorder [Unknown]
